FAERS Safety Report 5156994-2 (Version None)
Quarter: 2006Q4

REPORT INFORMATION
  Report Type: 
  Country: None (occurrence: None)
  Receive Date: 20061116
  Receipt Date: 20061106
  Transmission Date: 20070319
  Serious: Yes (Hospitalization)
  Sender: FDA-Public Use
  Company Number: 227232

PATIENT
  Age: 28 Year
  Sex: Male
  Weight: 70.5 kg

DRUGS (5)
  1. EFALIZUMAB ( EFALIZUMAB) PWDR + SOLVENT, INJECTION  SOLN, 125 MG [Suspect]
     Indication: PSORIASIS
     Dosage: 1 MG, 1/WEEK, SUBCUTANEOUS
     Route: 058
     Dates: start: 20050819
  2. PREDNISONE TAB [Concomitant]
  3. CYCLOSPORINE [Concomitant]
  4. REMICADE [Concomitant]
  5. BENADRYL [Concomitant]

REACTIONS (13)
  - ANAEMIA [None]
  - ANOREXIA [None]
  - ARTHRALGIA [None]
  - ASTHENIA [None]
  - DIVERTICULUM INTESTINAL [None]
  - INFLAMMATION [None]
  - JOINT SWELLING [None]
  - LYMPHOCYTE PERCENTAGE DECREASED [None]
  - NEUTROPHIL PERCENTAGE INCREASED [None]
  - PSORIASIS [None]
  - PSORIATIC ARTHROPATHY [None]
  - SCAR [None]
  - WEIGHT DECREASED [None]
